FAERS Safety Report 5925296-6 (Version None)
Quarter: 2008Q4

REPORT INFORMATION
  Report Type: 
  Country: None (occurrence: None)
  Receive Date: 20081020
  Receipt Date: 20081020
  Transmission Date: 20090506
  Serious: Yes (Life-Threatening, Hospitalization)
  Sender: FDA-Public Use
  Company Number: None

PATIENT
  Sex: Female
  Weight: 63.5036 kg

DRUGS (1)
  1. KENALOG-40 [Suspect]
     Indication: INJECTION
     Dosage: ONE INJECTION ONLY
     Dates: start: 20080903, end: 20080903

REACTIONS (8)
  - CHEST DISCOMFORT [None]
  - DYSPHAGIA [None]
  - DYSPNOEA [None]
  - FEELING ABNORMAL [None]
  - HYPOAESTHESIA [None]
  - IMMOBILE [None]
  - PAIN [None]
  - PRESYNCOPE [None]
